FAERS Safety Report 4422308-6 (Version None)
Quarter: 2004Q3

REPORT INFORMATION
  Report Type: 
  Country: None (occurrence: None)
  Receive Date: 20040810
  Receipt Date: 20040802
  Transmission Date: 20050211
  Serious: Yes (Hospitalization)
  Sender: FDA-Public Use
  Company Number: S04-USA-04369-01

PATIENT
  Age: 45 Year
  Sex: Male

DRUGS (3)
  1. LAMICTAL [Suspect]
     Indication: BIPOLAR DISORDER
     Dosage: 150MG PER DAY
     Route: 048
     Dates: start: 20040101
  2. LEXAPRO [Suspect]
     Indication: BIPOLAR DISORDER
     Dosage: 10MG PER DAY
     Route: 048
  3. NEXIUM [Concomitant]
     Dosage: 40MG UNKNOWN
     Route: 065

REACTIONS (3)
  - BRADYCARDIA [None]
  - DEPRESSION [None]
  - DIZZINESS [None]
